FAERS Safety Report 7028899-3 (Version None)
Quarter: 2010Q4

REPORT INFORMATION
  Report Type: 
  Country: None (occurrence: None)
  Receive Date: 20101005
  Receipt Date: 20100923
  Transmission Date: 20110411
  Serious: Yes (Other)
  Sender: FDA-Public Use
  Company Number: US-PFIZER INC-2010080128

PATIENT
  Sex: Female
  Weight: 77.564 kg

DRUGS (5)
  1. AROMASIN [Suspect]
     Dosage: 25 MG, 1X/DAY
     Route: 048
  2. LIPITOR [Concomitant]
  3. TRIAMTERENE AND HYDROCHLOROTHIAZID ^HARRIS^ [Concomitant]
  4. ACTONEL [Concomitant]
  5. ACETYLSALICYLIC ACID [Concomitant]

REACTIONS (3)
  - ALOPECIA [None]
  - ARTHRALGIA [None]
  - HIRSUTISM [None]
